FAERS Safety Report 5046367-5 (Version None)
Quarter: 2006Q3

REPORT INFORMATION
  Report Type: 
  Country: None (occurrence: None)
  Receive Date: 20060710
  Receipt Date: 20060629
  Transmission Date: 20061208
  Serious: Yes (Life-Threatening)
  Sender: FDA-Public Use
  Company Number: JP-SANOFI-SYNTHELABO-A01200605183

PATIENT
  Sex: Male

DRUGS (3)
  1. FLUOROURACIL [Suspect]
     Route: 042
     Dates: start: 20060623, end: 20060623
  2. CALCIUM LEVOFOLINATE [Suspect]
     Route: 042
     Dates: start: 20060623, end: 20060623
  3. OXALIPLATIN [Suspect]
     Route: 042
     Dates: start: 20060623, end: 20060623

REACTIONS (1)
  - CEREBRAL HAEMORRHAGE [None]
